FAERS Safety Report 7759876 (Version 4)
Quarter: 2014Q1

REPORT INFORMATION
  Report Type: Report from Study
  Country: US (occurrence: US)
  Receive Date: 20110113
  Receipt Date: 20140325
  Transmission Date: 20141002
  Serious: Yes (Hospitalization)
  Sender: FDA-Public Use
  Company Number: US-ALEXION-A201100031

PATIENT
  Age: 25 Year
  Sex: Female

DRUGS (2)
  1. SOLIRIS [Suspect]
     Indication: PAROXYSMAL NOCTURNAL HAEMOGLOBINURIA
     Dosage: UNK
     Route: 042
     Dates: start: 20070522
  2. SOLIRIS [Suspect]
     Dosage: 900 MG, Q2W
     Route: 042

REACTIONS (13)
  - Cytomegalovirus viraemia [Recovering/Resolving]
  - Neisseria infection [Unknown]
  - Pyelonephritis [Unknown]
  - Flank pain [Unknown]
  - Haemolysis [Unknown]
  - Haemoglobin decreased [Unknown]
  - Liver palpable subcostal [Unknown]
  - Blood lactate dehydrogenase increased [Unknown]
  - Chromaturia [Unknown]
  - Nausea [Unknown]
  - Vomiting [Unknown]
  - Diarrhoea [Not Recovered/Not Resolved]
  - Fatigue [Not Recovered/Not Resolved]
